FAERS Safety Report 7324483-2 (Version None)
Quarter: 2011Q1

REPORT INFORMATION
  Report Type: 
  Country: None (occurrence: None)
  Receive Date: 20110203
  Receipt Date: 20100923
  Transmission Date: 20110831
  Serious: Yes (Other)
  Sender: FDA-Public Use
  Company Number: 017665

PATIENT
  Sex: Female
  Weight: 59 kg

DRUGS (3)
  1. KEPPRA [Suspect]
     Indication: CONVULSION
     Dosage: (1500 MG BID ORAL)
     Route: 048
     Dates: start: 20080901
  2. TRILEPTAL [Concomitant]
  3. LEVETIRACETAM [Suspect]

REACTIONS (11)
  - DECREASED INTEREST [None]
  - AGITATION [None]
  - APATHY [None]
  - THINKING ABNORMAL [None]
  - DEPRESSION [None]
  - PERSONALITY CHANGE [None]
  - ABDOMINAL DISCOMFORT [None]
  - HYPERSOMNIA [None]
  - CONVULSION [None]
  - AMNESIA [None]
  - SUSPICIOUSNESS [None]
